FAERS Safety Report 17301622 (Version 1)
Quarter: 2020Q1

REPORT INFORMATION
  Report Type: Spontaneous
  Country: US (occurrence: US)
  Receive Date: 20200122
  Receipt Date: 20200122
  Transmission Date: 20200409
  Serious: Yes (Other)
  Sender: FDA-Public Use
  Company Number: US-ENDO PHARMACEUTICALS INC-2019-102316

PATIENT
  Age: 41 Year
  Sex: Male
  Weight: 97.51 kg

DRUGS (1)
  1. PERCOCET [Suspect]
     Active Substance: ACETAMINOPHEN\OXYCODONE HYDROCHLORIDE
     Indication: PRODUCT USED FOR UNKNOWN INDICATION
     Dosage: UNK UNKNOWN, UNKNOWN
     Route: 065

REACTIONS (4)
  - Road traffic accident [Unknown]
  - Drug abuse [Unknown]
  - Impaired driving ability [Unknown]
  - Incoherent [Unknown]

NARRATIVE: CASE EVENT DATE: 20161220
